FAERS Safety Report 20376878 (Version 1)
Quarter: 2022Q1

REPORT INFORMATION
  Report Type: Spontaneous
  Country: US (occurrence: US)
  Receive Date: 20220125
  Receipt Date: 20220125
  Transmission Date: 20220423
  Serious: Yes (Hospitalization)
  Sender: FDA-Public Use
  Company Number: US-ACERUSPHRM-2022-US-000003

PATIENT
  Age: 55 Year
  Sex: Male
  Weight: 110 kg

DRUGS (3)
  1. TESTOSTERONE [Suspect]
     Active Substance: TESTOSTERONE
     Indication: Hypogonadism
     Dosage: TWO PACKETS TO THE SHOULDER ONCE DAILY
  2. UNSPECIFIED INGREDIENT [Concomitant]
     Active Substance: UNSPECIFIED INGREDIENT
     Indication: Venous thrombosis
     Route: 051
  3. UNSPECIFIED INGREDIENT [Concomitant]
     Active Substance: UNSPECIFIED INGREDIENT
     Indication: Venous thrombosis
     Route: 048

REACTIONS (3)
  - Fatigue [Unknown]
  - Mesenteric vein thrombosis [Unknown]
  - Portal vein thrombosis [Unknown]
